FAERS Safety Report 7289310-0 (Version None)
Quarter: 2011Q1

REPORT INFORMATION
  Report Type: 
  Country: None (occurrence: None)
  Receive Date: 20110211
  Receipt Date: 20110201
  Transmission Date: 20110831
  Serious: Yes (Other)
  Sender: FDA-Public Use
  Company Number: US-PURDUE-USA-2010-0053968

PATIENT
  Sex: Male
  Weight: 116.1 kg

DRUGS (2)
  1. OXYCONTIN [Suspect]
     Dosage: 80 MG, TID
  2. OXYCONTIN [Suspect]
     Indication: PAIN
     Dosage: 60 MG, BID
     Dates: start: 20090101

REACTIONS (3)
  - INTERVERTEBRAL DISC SPACE NARROWING [None]
  - INTERVERTEBRAL DISC PROTRUSION [None]
  - INTERVERTEBRAL DISC DEGENERATION [None]
